FAERS Safety Report 20439324 (Version 1)
Quarter: 2022Q1

REPORT INFORMATION
  Report Type: Report from Study
  Country: FR (occurrence: FR)
  Receive Date: 20220207
  Receipt Date: 20220207
  Transmission Date: 20220423
  Serious: Yes (Other)
  Sender: FDA-Public Use
  Company Number: FR-AMGEN-FRANI2022016356

PATIENT
  Age: 62 Year
  Sex: Female

DRUGS (18)
  1. AMG-510 [Suspect]
     Active Substance: AMG-510
     Indication: Non-small cell lung cancer
     Dosage: 960 MILLIGRAM, 1/5
     Route: 048
     Dates: start: 20211109, end: 20220125
  2. ESCITALOPRAM OXALATE [Concomitant]
     Active Substance: ESCITALOPRAM OXALATE
     Dosage: 10 MILLIGRAM, QD FOR MONTH
  3. FORADIL [Concomitant]
     Active Substance: FORMOTEROL FUMARATE
     Dosage: 12 MILLIGRAM, BID (MORNING AND EVENING, FOR ONE MONTH)
  4. ESOMEPRAZOLE ALMUS [ESOMEPRAZOLE SODIUM] [Concomitant]
     Dosage: 20 MILLIGRAM, BID (MORNING AND EVENING, FOR ONE MONTH)
  5. POTASSIUM CHLORIDE [Concomitant]
     Active Substance: POTASSIUM CHLORIDE
     Dosage: 600 MILLIGRAM, BID FOR MONTH
  6. CETIRIZINE HYDROCHLORIDE [Concomitant]
     Active Substance: CETIRIZINE HYDROCHLORIDE
     Dosage: 10 MILLIGRAM, QD, FOR ONE MONTH
  7. EZETIMIBE ACCORD [Concomitant]
     Dosage: 10 MILLIGRAM, QD, FOR ONE MONTH
  8. FOLIC ACID [Concomitant]
     Active Substance: FOLIC ACID
     Dosage: 5 MILLIGRAM, QD, FOR ONE MONTH
  9. HYDROCORTISONE [Concomitant]
     Active Substance: HYDROCORTISONE
     Dosage: 10 MILLIGRAM, BID (2 TABLETS IN MORNING AND 1 TABLET AT NOON FOR ONE MONTH)
  10. NOVORAPID [Concomitant]
     Active Substance: INSULIN ASPART
     Dosage: 100 U/ML 3 ML PEN 5 (12 UNITS IN THE MORNING FOR ONE MONTH)
  11. LEVEMIR [Concomitant]
     Active Substance: INSULIN DETEMIR
     Dosage: 100 U/ML 3 ML PEN 5 (44 UNITS IN THE EVENING FOR ONE MONTH)
  12. ACETAMINOPHEN [Concomitant]
     Active Substance: ACETAMINOPHEN
     Dosage: 1000 MILLIGRAM, TID (AS NEEDED)
  13. POLYETHYLENE GLYCOLS [Concomitant]
     Active Substance: POLYETHYLENE GLYCOLS
     Dosage: 5.9 GRAM, QD (2 SACHETS IN THE MORNING FOR ONE MONTH)
  14. DAPAGLIFLOZIN [Concomitant]
     Active Substance: DAPAGLIFLOZIN
     Dosage: 10 MILLIGRAM, QD (IN THE MORNING FOR ONE MONTH)
  15. FLUCONAZOLE [Concomitant]
     Active Substance: FLUCONAZOLE
     Dosage: 150 MILLIGRAM, QWK FOR ONE MONTH
  16. CARBOMER [Concomitant]
     Active Substance: CARBOMER
     Dosage: 1 DROP, BID FOR ONE MONTH
  17. XARELTO [Concomitant]
     Active Substance: RIVAROXABAN
     Dosage: 20 MILLIGRAM, QD FOR ONE MONTH
  18. LIBRENTIN [SALBUTAMOL] [Concomitant]
     Dosage: UNK (2 PACKS)

REACTIONS (3)
  - Hepatic cytolysis [Unknown]
  - Generalised oedema [Unknown]
  - Diarrhoea [Unknown]

NARRATIVE: CASE EVENT DATE: 20220104
